FAERS Safety Report 18415253 (Version 1)
Quarter: 2020Q4

REPORT INFORMATION
  Report Type: Spontaneous
  Country: IT (occurrence: IT)
  Receive Date: 20201022
  Receipt Date: 20201022
  Transmission Date: 20210114
  Serious: Yes (Hospitalization)
  Sender: FDA-Public Use
  Company Number: IT-TEVA-2020-IT-1839907

PATIENT
  Age: 47 Year
  Sex: Female

DRUGS (2)
  1. TICHE 100 MICROGRAMMI CAPSULE MOLLI [Concomitant]
     Indication: POST PROCEDURAL HYPOTHYROIDISM
     Dosage: 100 MCG
     Route: 048
  2. CIPROFLOXACIN. [Suspect]
     Active Substance: CIPROFLOXACIN
     Indication: CYSTITIS ESCHERICHIA
     Dosage: 1 GRAM
     Route: 048
     Dates: start: 20200829, end: 20200831

REACTIONS (3)
  - Oral dysaesthesia [Recovering/Resolving]
  - Paraesthesia [Recovering/Resolving]
  - Paraesthesia oral [Recovering/Resolving]

NARRATIVE: CASE EVENT DATE: 20200831
